FAERS Safety Report 4490018-5 (Version None)
Quarter: 2004Q4

REPORT INFORMATION
  Report Type: 
  Country: None (occurrence: None)
  Receive Date: 20041021
  Receipt Date: 20041008
  Transmission Date: 20050328
  Serious: Yes (Death)
  Sender: FDA-Public Use
  Company Number: WAES 0410USA02102

PATIENT
  Age: 55 Year
  Sex: Female

DRUGS (6)
  1. DECADRON [Suspect]
     Indication: CHEMOTHERAPY
     Dosage: 40 MG/DAILY
     Route: 042
     Dates: start: 20010101
  2. DECADRON [Suspect]
     Indication: VOMITING
     Dosage: 40 MG/DAILY
     Route: 042
     Dates: start: 20010101
  3. DECADRON [Suspect]
     Indication: CHEMOTHERAPY
     Dosage: 40 MG/DAILY
     Route: 048
     Dates: start: 20010101
  4. DECADRON [Suspect]
     Indication: VOMITING
     Dosage: 40 MG/DAILY
     Route: 048
     Dates: start: 20010101
  5. INFUSION (FORM) GEMCITABINE [Suspect]
     Indication: CHEMOTHERAPY
     Dosage: 1000 MG/M[2]/UNK
     Route: 042
     Dates: start: 20010101
  6. INFUSION (FORM) CISPLATINE [Suspect]
     Indication: CHEMOTHERAPY
     Dosage: 75 MG/M[2]/1X
     Route: 042
     Dates: start: 20010101

REACTIONS (1)
  - ACUTE MYELOID LEUKAEMIA [None]
